FAERS Safety Report 21671710 (Version 1)
Quarter: 2022Q4

REPORT INFORMATION
  Report Type: Spontaneous
  Country: US (occurrence: US)
  Receive Date: 20221202
  Receipt Date: 20221202
  Transmission Date: 20230113
  Serious: No
  Sender: FDA-Public Use
  Company Number: US-ALXN-A202214882

PATIENT
  Age: 69 Year
  Sex: Male
  Weight: 117.91 kg

DRUGS (1)
  1. ULTOMIRIS [Suspect]
     Active Substance: RAVULIZUMAB-CWVZ
     Indication: Myasthenia gravis
     Dosage: 3000 MG, UNK
     Route: 065

REACTIONS (2)
  - Back pain [Recovered/Resolved]
  - Muscle spasms [Recovered/Resolved]
